FAERS Safety Report 23266453 (Version 1)
Quarter: 2023Q4

REPORT INFORMATION
  Report Type: Spontaneous
  Country: US (occurrence: None)
  Receive Date: 20231205
  Receipt Date: 20231205
  Transmission Date: 20240110
  Serious: Yes (Other)
  Sender: FDA-Public Use
  Company Number: None

PATIENT
  Age: 55 Year
  Sex: Female

DRUGS (1)
  1. BOTOX [Suspect]
     Active Substance: ONABOTULINUMTOXINA
     Dosage: FREQUENCY : ONCE;?
     Route: 030
     Dates: start: 202306

REACTIONS (2)
  - Influenza like illness [None]
  - Therapy interrupted [None]

NARRATIVE: CASE EVENT DATE: 20231205
